FAERS Safety Report 8376235 (Version 2)
Quarter: 2013Q1

REPORT INFORMATION
  Report Type: Report from Study
  Country: US (occurrence: US)
  Receive Date: 20120129
  Receipt Date: 20130129
  Transmission Date: 20140127
  Serious: No
  Sender: FDA-Public Use
  Company Number: US-ABBOTT-11P-163-0882208-00

PATIENT
  Age: 41 Year
  Sex: Female

DRUGS (10)
  1. HUMIRA 40 MG/0.8 ML PEN [Suspect]
     Indication: CROHN^S DISEASE
     Dates: start: 20111129, end: 20120215
  2. HUMIRA 40 MG/0.8 ML PEN [Suspect]
     Dosage: 80 MG DAY 15
  3. HUMIRA 40 MG/0.8 ML PEN [Suspect]
     Dosage: 160 MG
  4. HUMIRA 40 MG/0.8 ML PEN [Suspect]
     Dates: start: 20120329
  5. ASACOL [Concomitant]
     Indication: CROHN^S DISEASE
     Dosage: 3 PILLS BID
     Route: 048
  6. LEVOTHYROXINE [Concomitant]
     Indication: HYPOTHYROIDISM
     Route: 048
  7. ATENOLOL [Concomitant]
     Indication: HYPERTENSION
     Route: 048
  8. FLEXERIL [Concomitant]
     Indication: INSOMNIA
     Route: 048
  9. CEFUROXIME [Concomitant]
     Indication: BARTHOLIN^S CYST
  10. CEFUROXIME [Concomitant]
     Indication: INFECTION

REACTIONS (16)
  - Injection site pain [Recovered/Resolved]
  - Injection site pain [Recovered/Resolved]
  - Drug ineffective [Not Recovered/Not Resolved]
  - Malaise [Not Recovered/Not Resolved]
  - Influenza [Not Recovered/Not Resolved]
  - Nausea [Not Recovered/Not Resolved]
  - Diarrhoea [Not Recovered/Not Resolved]
  - Fatigue [Not Recovered/Not Resolved]
  - Injection site pain [Not Recovered/Not Resolved]
  - Crohn^s disease [Not Recovered/Not Resolved]
  - Fatigue [Not Recovered/Not Resolved]
  - Abdominal pain [Not Recovered/Not Resolved]
  - Flatulence [Not Recovered/Not Resolved]
  - Abdominal pain upper [Unknown]
  - Bronchitis [Recovering/Resolving]
  - Blood creatine increased [Unknown]
